FAERS Safety Report 12632133 (Version 2)
Quarter: 2016Q3

REPORT INFORMATION
  Report Type: Spontaneous
  Country: US (occurrence: US)
  Receive Date: 20160808
  Receipt Date: 20160808
  Transmission Date: 20161109
  Serious: No
  Sender: FDA-Public Use
  Company Number: US-BEH-2016061957

PATIENT
  Age: 58 Year
  Sex: Female
  Weight: 59 kg

DRUGS (23)
  1. HIZENTRA [Suspect]
     Active Substance: HUMAN IMMUNOGLOBULIN G
     Route: 058
     Dates: start: 20140827
  2. AMPHOTERICIN [Concomitant]
     Active Substance: AMPHOTERICIN B
  3. CYCLOBENZAPRINE [Concomitant]
     Active Substance: CYCLOBENZAPRINE
  4. MULTIVITAMIN [Concomitant]
     Active Substance: VITAMINS
  5. WELLBUTRIN [Concomitant]
     Active Substance: BUPROPION HYDROCHLORIDE
  6. LMX [Concomitant]
     Active Substance: LIDOCAINE
  7. VALACYCLOVIR [Concomitant]
     Active Substance: VALACYCLOVIR HYDROCHLORIDE
  8. VANCOMYCIN [Concomitant]
     Active Substance: VANCOMYCIN
  9. CYMBALTA [Concomitant]
     Active Substance: DULOXETINE HYDROCHLORIDE
  10. PROAIR HFA [Concomitant]
     Active Substance: ALBUTEROL SULFATE
  11. HIZENTRA [Suspect]
     Active Substance: HUMAN IMMUNOGLOBULIN G
     Indication: IMMUNODEFICIENCY COMMON VARIABLE
     Route: 058
  12. DIPHENHYDRAMINE. [Concomitant]
     Active Substance: DIPHENHYDRAMINE
  13. EPIPEN [Concomitant]
     Active Substance: EPINEPHRINE
  14. CEFTAZIDIME. [Concomitant]
     Active Substance: CEFTAZIDIME
  15. VITAMIN D [Concomitant]
     Active Substance: CHOLECALCIFEROL
  16. HIZENTRA [Suspect]
     Active Substance: HUMAN IMMUNOGLOBULIN G
     Route: 058
  17. ACETAMINOPHEN. [Concomitant]
     Active Substance: ACETAMINOPHEN
  18. LYRICA [Concomitant]
     Active Substance: PREGABALIN
  19. ESTRADIOL. [Concomitant]
     Active Substance: ESTRADIOL
  20. ADVAIR HFA [Concomitant]
     Active Substance: FLUTICASONE PROPIONATE\SALMETEROL XINAFOATE
  21. SPIRIVA [Concomitant]
     Active Substance: TIOTROPIUM BROMIDE MONOHYDRATE
  22. NASONEX [Concomitant]
     Active Substance: MOMETASONE FUROATE
  23. IBUPROFEN. [Concomitant]
     Active Substance: IBUPROFEN

REACTIONS (1)
  - Nasopharyngitis [Unknown]

NARRATIVE: CASE EVENT DATE: 201602
